FAERS Safety Report 7464223-X (Version None)
Quarter: 2011Q2

REPORT INFORMATION
  Report Type: 
  Country: None (occurrence: None)
  Receive Date: 20110506
  Receipt Date: 20110502
  Transmission Date: 20111010
  Serious: Yes (Life-Threatening, Hospitalization)
  Sender: FDA-Public Use
  Company Number: FR-ASTRAZENECA-2011SE25511

PATIENT
  Age: 72 Year
  Sex: Female

DRUGS (9)
  1. TRIMETAZIDINE BIOGARAN [Suspect]
     Route: 048
     Dates: end: 20110228
  2. ACTONEL [Suspect]
     Route: 048
     Dates: end: 20110228
  3. CHONDROSULF [Suspect]
     Route: 048
     Dates: end: 20110228
  4. BISOPROLOL FUMARATE AND HYDROCHLOROTHIAZIDE [Suspect]
     Indication: HYPERTENSION
     Route: 048
     Dates: end: 20110228
  5. ARAVA [Suspect]
     Indication: RHEUMATOID ARTHRITIS
     Route: 048
     Dates: end: 20110228
  6. KETOPROFEN [Suspect]
     Indication: RHEUMATOID ARTHRITIS
     Route: 048
     Dates: end: 20110228
  7. NEXIUM [Suspect]
     Route: 048
     Dates: end: 20110228
  8. FENOFIBRATE [Suspect]
     Indication: DYSLIPIDAEMIA
     Route: 048
     Dates: end: 20110228
  9. BUSPIRONE HCL [Suspect]
     Route: 048
     Dates: end: 20110228

REACTIONS (2)
  - ACUTE RESPIRATORY FAILURE [None]
  - BRONCHOPNEUMOPATHY [None]
